FAERS Safety Report 7581270-8 (Version None)
Quarter: 2011Q2

REPORT INFORMATION
  Report Type: 
  Country: None (occurrence: None)
  Receive Date: 20110629
  Receipt Date: 20110622
  Transmission Date: 20111010
  Serious: Yes (Life-Threatening)
  Sender: FDA-Public Use
  Company Number: JP-CELGENEUS-087-21880-11032712

PATIENT
  Sex: Female

DRUGS (13)
  1. VELCADE [Suspect]
     Route: 065
     Dates: start: 20110304
  2. FLUCONAZOLE [Concomitant]
     Indication: PROPHYLAXIS
     Dosage: 100 MILLIGRAM
     Route: 048
     Dates: start: 20110207, end: 20110318
  3. MUCOSTA [Concomitant]
     Dosage: 300 MILLIGRAM
     Route: 048
     Dates: start: 20110207, end: 20110318
  4. ISODINE [Concomitant]
     Indication: PROPHYLAXIS
     Route: 061
     Dates: start: 20110207, end: 20110318
  5. PURSENNID [Concomitant]
     Dosage: 12 MILLIGRAM
     Route: 048
     Dates: start: 20110207, end: 20110318
  6. MAGMITT [Concomitant]
     Dosage: 750 MILLIGRAM
     Route: 048
     Dates: start: 20110207, end: 20110318
  7. DEXAMETHASONE [Suspect]
     Indication: MULTIPLE MYELOMA
     Dosage: 20 MILLIGRAM
     Route: 048
     Dates: start: 20110125, end: 20110208
  8. REVLIMID [Suspect]
     Indication: MULTIPLE MYELOMA
     Dosage: 15 MILLIGRAM
     Route: 048
     Dates: start: 20110125, end: 20110206
  9. SULFAMETHOXAZOLE [Concomitant]
     Indication: PROPHYLAXIS
     Dosage: 1 TABLET
     Route: 048
     Dates: start: 20110207, end: 20110318
  10. LANSOPRAZOLE [Concomitant]
     Dosage: 15 MILLIGRAM
     Route: 048
     Dates: start: 20110122, end: 20110318
  11. DEXAMETHASONE [Suspect]
     Route: 048
     Dates: start: 20110304
  12. LANSOPRAZOLE [Concomitant]
     Dosage: 30 MILLIGRAM
     Route: 041
     Dates: start: 20110309, end: 20110318
  13. ZANTAC [Concomitant]
     Dosage: 150 MILLIGRAM
     Route: 048
     Dates: start: 20110207, end: 20110221

REACTIONS (3)
  - MELAENA [None]
  - RENAL FAILURE [None]
  - CONSTIPATION [None]
